FAERS Safety Report 16694493 (Version 1)
Quarter: 2019Q3

REPORT INFORMATION
  Report Type: Spontaneous
  Country: US (occurrence: US)
  Receive Date: 20190812
  Receipt Date: 20190812
  Transmission Date: 20191004
  Serious: Yes (Other)
  Sender: FDA-Public Use
  Company Number: PHHY2019US185499

PATIENT
  Age: 35 Month
  Sex: Male

DRUGS (3)
  1. MELPHALAN. [Suspect]
     Active Substance: MELPHALAN
     Dosage: 20 PG, UNK
     Route: 031
  2. MELPHALAN. [Suspect]
     Active Substance: MELPHALAN
     Indication: RETINOBLASTOMA
     Dosage: 5 MG, UNK
     Route: 065
  3. TOPOTECAN [Suspect]
     Active Substance: TOPOTECAN HYDROCHLORIDE
     Indication: RETINOBLASTOMA
     Dosage: 0.4 MG, UNK
     Route: 065

REACTIONS (2)
  - Anaphylactic reaction [Recovering/Resolving]
  - Product use in unapproved indication [Unknown]
